FAERS Safety Report 19142899 (Version 8)
Quarter: 2022Q1

REPORT INFORMATION
  Report Type: Report from Study
  Country: US (occurrence: US)
  Receive Date: 20210415
  Receipt Date: 20220316
  Transmission Date: 20220423
  Serious: No
  Sender: FDA-Public Use
  Company Number: NVSC2021US078731

PATIENT
  Age: 31 Year
  Sex: Female

DRUGS (5)
  1. KESIMPTA [Suspect]
     Active Substance: OFATUMUMAB
     Indication: Relapsing multiple sclerosis
     Dosage: 20 MG, QW
     Route: 058
     Dates: start: 20210402
  2. KESIMPTA [Suspect]
     Active Substance: OFATUMUMAB
     Indication: Multiple sclerosis
     Dosage: 20 MG, QMO
     Route: 058
  3. MOTRIN [Concomitant]
     Active Substance: IBUPROFEN
     Indication: Product used for unknown indication
     Dosage: UNK
     Route: 065
  4. TYLENOL [Concomitant]
     Active Substance: ACETAMINOPHEN
     Indication: Product used for unknown indication
     Dosage: UNK
     Route: 065
  5. BENADRYL [Concomitant]
     Active Substance: DIPHENHYDRAMINE HYDROCHLORIDE
     Indication: Product used for unknown indication
     Dosage: UNK
     Route: 065

REACTIONS (8)
  - Limb discomfort [Recovered/Resolved]
  - Pruritus [Recovered/Resolved]
  - Contusion [Not Recovered/Not Resolved]
  - B-lymphocyte count decreased [Unknown]
  - COVID-19 [Recovered/Resolved]
  - Pyrexia [Recovered/Resolved]
  - Chills [Recovered/Resolved]
  - Pharyngitis streptococcal [Not Recovered/Not Resolved]

NARRATIVE: CASE EVENT DATE: 20210402
